FAERS Safety Report 4574281-8 (Version None)
Quarter: 2005Q1

REPORT INFORMATION
  Report Type: 
  Country: None (occurrence: None)
  Receive Date: 20050208
  Receipt Date: 20041203
  Transmission Date: 20050727
  Serious: No
  Sender: FDA-Public Use
  Company Number: US-GLAXOSMITHKLINE-A0536044A

PATIENT
  Age: 31 Year
  Sex: Female

DRUGS (2)
  1. PAXIL [Suspect]
     Dosage: 20MG PER DAY
     Route: 048
     Dates: start: 20041201
  2. NASONEX [Concomitant]

REACTIONS (5)
  - DIARRHOEA [None]
  - FEELING ABNORMAL [None]
  - HEART RATE INCREASED [None]
  - LETHARGY [None]
  - NAUSEA [None]
